FAERS Safety Report 5132303-X (Version None)
Quarter: 2006Q4

REPORT INFORMATION
  Report Type: 
  Country: None (occurrence: None)
  Receive Date: 20061020
  Receipt Date: 20061020
  Transmission Date: 20070319
  Serious: Yes (Hospitalization)
  Sender: FDA-Public Use
  Company Number: None

PATIENT
  Sex: Male
  Weight: 94.55 kg

DRUGS (6)
  1. CYCLOPHOSPHAMIDE [Suspect]
     Dosage: 1650 MG; IV INFUSION DAY 5 ONLY PER PROTOCOL
     Route: 042
  2. DOXORUBICIN HYDROCHLORIDE [Suspect]
     Dosage: 88 MG; CONTINUOUS INFUSION PER PROTOCOL DAYS 1-4
  3. ETOPOSIDE [Suspect]
     Dosage: 444 MG; CONTINUOUS INFUSION PER PROTOCOL DAYS 1-4
  4. PREDNISONE TAB [Suspect]
     Dosage: 1500 MG; 150 MG PO BID FOR DAY 1-5 PER PROTOCOL
     Route: 048
  5. RITUXIMAB (MOAB C2B8 ANTI CD20, CHIMERIC) [Suspect]
     Dosage: 832 MG IV INFUSION PER PROTOCOL
     Route: 042
  6. VINCRISTINE SULFATE [Suspect]
     Dosage: 3.52 MG; CONTINUOUS INFUSION PER PROTOCOL ON DAYS 1-4

REACTIONS (7)
  - ABDOMINAL PAIN [None]
  - DEHYDRATION [None]
  - FEBRILE NEUTROPENIA [None]
  - INTESTINAL OBSTRUCTION [None]
  - NAUSEA [None]
  - PLATELET COUNT DECREASED [None]
  - VOMITING [None]
